FAERS Safety Report 13326105 (Version 1)
Quarter: 2017Q1

REPORT INFORMATION
  Report Type: Spontaneous
  Country: NL (occurrence: NL)
  Receive Date: 20170310
  Receipt Date: 20170310
  Transmission Date: 20170428
  Serious: Yes (Hospitalization, Other)
  Sender: FDA-Public Use
  Company Number: NL-JAZZ-2017-NL-002712

PATIENT
  Age: 41 Year
  Sex: Male

DRUGS (6)
  1. XYREM [Suspect]
     Active Substance: SODIUM OXYBATE
     Dosage: UNKNOWN DOSE
  2. XYREM [Suspect]
     Active Substance: SODIUM OXYBATE
     Dosage: 10 ML/2H (71.4 MG/KG)
  3. XYREM [Suspect]
     Active Substance: SODIUM OXYBATE
     Dosage: 22 ML/2 H (157 MG/KG)
  4. SODIUM CHLORIDE. [Concomitant]
     Active Substance: SODIUM CHLORIDE
     Indication: PRODUCT USED FOR UNKNOWN INDICATION
  5. XYREM [Suspect]
     Active Substance: SODIUM OXYBATE
     Dosage: TAPERED OFF MY 1 ML/DAY PER ADMINISTRATION
  6. XYREM [Suspect]
     Active Substance: SODIUM OXYBATE
     Dosage: TWO ADMINISTRATIONS

REACTIONS (10)
  - Metabolic alkalosis [Unknown]
  - Pain [Unknown]
  - Apnoeic attack [Unknown]
  - Blood creatinine increased [Recovered/Resolved]
  - Respiratory distress [Unknown]
  - Rhonchi [Unknown]
  - Agitation [Unknown]
  - Hypernatraemia [Recovered/Resolved]
  - Off label use [Unknown]
  - Akathisia [Unknown]
